FAERS Safety Report 7691208 (Version 7)
Quarter: 2013Q2

REPORT INFORMATION
  Report Type: Spontaneous
  Country: JP (occurrence: JP)
  Receive Date: 20101203
  Receipt Date: 20130605
  Transmission Date: 20140414
  Serious: Yes (Death, Hospitalization, Other)
  Sender: FDA-Public Use
  Company Number: PHHY2008JP12496

PATIENT
  Age: 53 Year
  Sex: Male
  Weight: 52 kg

DRUGS (37)
  1. CERTICAN [Suspect]
     Indication: HEART TRANSPLANT
     Dosage: 2 MG, UNK
     Route: 048
     Dates: start: 20070713, end: 20070723
  2. CERTICAN [Suspect]
     Dosage: 3 MG, UNK
     Route: 048
     Dates: start: 20070724, end: 20070727
  3. CERTICAN [Suspect]
     Dosage: 2.75 MG, UNK
     Route: 048
     Dates: start: 20070728, end: 20071007
  4. CERTICAN [Suspect]
     Dosage: 2.5 MG, UNK
     Route: 048
     Dates: start: 20071008
  5. CERTICAN [Suspect]
     Dosage: 1.25 MG, UNK
     Route: 048
     Dates: start: 20080730, end: 20080730
  6. CERTICAN [Suspect]
     Dosage: 1.75 MG, UNK
     Dates: start: 20080801, end: 20080824
  7. CERTICAN [Suspect]
     Dosage: 2.5 MG, UNK
     Route: 048
     Dates: start: 20080825, end: 20080906
  8. CERTICAN [Suspect]
     Dosage: 2.75 MG, UNK
     Route: 048
     Dates: start: 20080907, end: 20080927
  9. CERTICAN [Suspect]
     Dosage: 3.25 MG, UNK
     Route: 048
     Dates: start: 20080928, end: 20090605
  10. CERTICAN [Suspect]
     Dosage: 3 MG, UNK
     Route: 048
     Dates: start: 20090606, end: 20090718
  11. CERTICAN [Suspect]
     Dosage: 4 MG, UNK
     Route: 048
     Dates: start: 20090719
  12. CERTICAN [Suspect]
     Dosage: 4.25 MG, DAILY
     Route: 048
     Dates: start: 20090822, end: 20090903
  13. CERTICAN [Suspect]
     Dosage: 4.5 MG, DAILY
     Route: 048
     Dates: start: 20090904, end: 20091112
  14. CERTICAN [Suspect]
     Dosage: 4.75 MG, UNK
     Route: 048
     Dates: start: 20091113, end: 20100302
  15. NEORAL [Suspect]
     Indication: HEART TRANSPLANT
     Dosage: UNK UKN, UNK
     Route: 048
     Dates: start: 1995, end: 2001
  16. NEORAL [Suspect]
     Indication: RENAL TRANSPLANT
     Dosage: UNK UKN, UNK
     Dates: start: 2001, end: 2006
  17. PREDNISOLONE [Suspect]
     Dosage: 5 MG, UNK
     Route: 048
     Dates: start: 20080730
  18. PROGRAF [Suspect]
     Dosage: UNK UKN, UNK
     Route: 048
     Dates: start: 2001, end: 200612
  19. PROGRAF [Suspect]
     Dosage: 4 MG, UNK
     Route: 048
     Dates: start: 20020219, end: 20070712
  20. PROGRAF [Suspect]
     Dosage: 0.5 MG, UNK
     Route: 048
     Dates: start: 20070713
  21. PROGRAF [Suspect]
     Dosage: 3.5 MG, UNK
     Route: 048
     Dates: start: 20080729, end: 20080730
  22. PROGRAF [Suspect]
     Dosage: 3 MG, UNK
     Route: 048
     Dates: start: 20080801, end: 20080822
  23. PROGRAF [Suspect]
     Dosage: 2.25 MG, UNK
     Route: 048
     Dates: start: 20080823, end: 20080825
  24. PROGRAF [Suspect]
     Dosage: 2 MG, UNK
     Route: 048
     Dates: start: 20080826, end: 20080927
  25. PROGRAF [Suspect]
     Dosage: 1.5 MG, UNK
     Route: 048
     Dates: start: 20080928, end: 20081002
  26. AZATHIOPRINE [Concomitant]
     Dosage: UNK UKN, UNK
     Route: 048
     Dates: start: 1995, end: 2001
  27. PREDONINE [Concomitant]
     Dosage: UNK UKN, UNK
     Route: 048
     Dates: start: 1995
  28. MYCOPHENOLATE MOFETIL [Concomitant]
     Dosage: UNK UKN, UNK
     Route: 048
  29. MYCOPHENOLATE MOFETIL [Concomitant]
     Dosage: 250 MG, UNK
     Route: 048
  30. MYCOPHENOLATE MOFETIL [Concomitant]
     Dosage: 500 MG, UNK
     Route: 048
     Dates: start: 2001
  31. TACROLIMUS [Concomitant]
     Dosage: UNK UKN, UNK
     Dates: start: 2001
  32. STEROIDS NOS [Concomitant]
     Dosage: UNK UKN, UNK
     Dates: start: 2001
  33. CHEMOTHERAPEUTICS NOS [Concomitant]
     Dosage: UNK UKN, UNK
     Dates: start: 200810, end: 200903
  34. PRAVASTATIN SODIUM [Concomitant]
     Dosage: 10 MG, UNK
     Route: 048
     Dates: start: 199506
  35. PRAVASTATIN SODIUM [Concomitant]
     Dosage: 20 MG, UNK
     Route: 048
  36. TRANDOLAPRIL [Concomitant]
     Dosage: 2 MG, UNK
     Route: 048
     Dates: start: 20040712
  37. CANDESARTAN CILEXETIL [Concomitant]
     Dosage: 8 MG, UNK
     Route: 048
     Dates: start: 20011205

REACTIONS (11)
  - Post transplant lymphoproliferative disorder [Fatal]
  - General physical health deterioration [Fatal]
  - Kidney transplant rejection [Recovered/Resolved]
  - Drug resistance [Unknown]
  - Complications of transplanted heart [Unknown]
  - Renal failure chronic [Unknown]
  - Renal impairment [Recovering/Resolving]
  - Neoplasm progression [Unknown]
  - C-reactive protein decreased [Unknown]
  - Back pain [Unknown]
  - Blood triglycerides increased [Unknown]
